FAERS Safety Report 16307877 (Version 4)
Quarter: 2019Q4

REPORT INFORMATION
  Report Type: Report from Study
  Country: US (occurrence: US)
  Receive Date: 20190514
  Receipt Date: 20191014
  Transmission Date: 20200122
  Serious: Yes (Hospitalization, Other)
  Sender: FDA-Public Use
  Company Number: US-BAUSCH-BL-2019-014093

PATIENT
  Sex: Male
  Weight: 87.17 kg

DRUGS (2)
  1. XIFAXAN [Suspect]
     Active Substance: RIFAXIMIN
     Dosage: RESTARTED AGAIN.
     Route: 065
  2. XIFAXAN [Suspect]
     Active Substance: RIFAXIMIN
     Indication: HEPATIC ENCEPHALOPATHY
     Route: 065

REACTIONS (9)
  - Loss of consciousness [Recovering/Resolving]
  - Coma [Recovering/Resolving]
  - Rehabilitation therapy [Recovering/Resolving]
  - Diarrhoea [Recovering/Resolving]
  - Weight decreased [Recovering/Resolving]
  - Ammonia increased [Recovering/Resolving]
  - Therapy cessation [Unknown]
  - Hospitalisation [Recovered/Resolved]
  - Product availability issue [Unknown]

NARRATIVE: CASE EVENT DATE: 2019
